FAERS Safety Report 16405915 (Version 1)
Quarter: 2019Q2

REPORT INFORMATION
  Report Type: Spontaneous
  Country: US (occurrence: US)
  Receive Date: 20190607
  Receipt Date: 20190607
  Transmission Date: 20190711
  Serious: Yes (Other)
  Sender: FDA-Public Use
  Company Number: US-SA-2019SA149161

PATIENT
  Age: 54 Year
  Sex: Female

DRUGS (1)
  1. LOVENOX [Suspect]
     Active Substance: ENOXAPARIN SODIUM
     Dosage: 60 MG, BID
     Route: 065

REACTIONS (6)
  - Initial insomnia [Unknown]
  - Injection site pain [Unknown]
  - Stress [Unknown]
  - Exposure during pregnancy [Unknown]
  - Seizure [Unknown]
  - Electroencephalogram abnormal [Unknown]
